FAERS Safety Report 5122487-1 (Version None)
Quarter: 2006Q4

REPORT INFORMATION
  Report Type: 
  Country: None (occurrence: None)
  Receive Date: 20061004
  Receipt Date: 20060925
  Transmission Date: 20070319
  Serious: Yes (Death, Hospitalization)
  Sender: FDA-Public Use
  Company Number: 06-040

PATIENT
  Age: 66 Year
  Sex: Male

DRUGS (7)
  1. LORTAB [Suspect]
     Indication: MUSCULOSKELETAL CHEST PAIN
     Dosage: 9/26-27/2003: 5 TABS/DAY; AFTER, PRN, PO
     Route: 048
     Dates: start: 20030926
  2. PERCOCET [Suspect]
     Indication: MUSCULOSKELETAL CHEST PAIN
     Dosage: 1-2 TABS, Q4H, PO
     Route: 048
     Dates: start: 20030921, end: 20030925
  3. ZOCOR [Suspect]
     Indication: HYPERCHOLESTEROLAEMIA
     Dosage: PO
     Route: 048
     Dates: start: 20031110
  4. PRAVACHOL [Suspect]
     Indication: HYPERCHOLESTEROLAEMIA
     Dosage: 20 MG, QHS, PO
     Route: 048
     Dates: end: 20031110
  5. ATENOLOL [Concomitant]
  6. ENALAPRIL MALEATE [Concomitant]
  7. KCI [Concomitant]

REACTIONS (5)
  - ABDOMINAL DISTENSION [None]
  - ALCOHOL USE [None]
  - HEPATIC FAILURE [None]
  - HEPATITIS C POSITIVE [None]
  - VOMITING [None]
